FAERS Safety Report 21964572 (Version 2)
Quarter: 2023Q1

REPORT INFORMATION
  Report Type: Spontaneous
  Country: RO (occurrence: RO)
  Receive Date: 20230207
  Receipt Date: 20230220
  Transmission Date: 20230418
  Serious: Yes (Other)
  Sender: FDA-Public Use
  Company Number: RO-TEVA-2023-RO-2851700

PATIENT
  Age: 53 Year
  Sex: Female

DRUGS (2)
  1. SUMATRIPTAN [Suspect]
     Active Substance: SUMATRIPTAN
     Indication: Migraine
     Dosage: ADDITIONAL INFO: ACTION TAKEN: INITIALLY, THE DRUG WAS STOPPED; HOWEVER, CURRENTLY SHE WAS TAKING SU
     Route: 065
  2. BISOPROLOL [Suspect]
     Active Substance: BISOPROLOL
     Indication: Hypertension
     Dosage: ADDITIONAL INFO: ACTION TAKEN: UNKNOWN AT THE TIME OF ADR; HOWEVER, CURRENTLY, SHE WAS RECEIVING BIS
     Route: 065

REACTIONS (2)
  - Optic ischaemic neuropathy [Not Recovered/Not Resolved]
  - Hypotension [Unknown]
